FAERS Safety Report 25046324 (Version 2)
Quarter: 2025Q1

REPORT INFORMATION
  Report Type: Report from Study
  Country: CA (occurrence: CA)
  Receive Date: 20250306
  Receipt Date: 20250314
  Transmission Date: 20250408
  Serious: No
  Sender: ABBVIE
  Company Number: CA-ABBVIE-6158613

PATIENT
  Age: 48 Year
  Sex: Male

DRUGS (2)
  1. SKYRIZI [Suspect]
     Active Substance: RISANKIZUMAB-RZAA
     Indication: Crohn^s disease
     Route: 058
     Dates: start: 202404
  2. SKYRIZI [Suspect]
     Active Substance: RISANKIZUMAB-RZAA
     Route: 058

REACTIONS (2)
  - Flatulence [Unknown]
  - Therapeutic response shortened [Unknown]
